FAERS Safety Report 25811199 (Version 1)
Quarter: 2025Q3

REPORT INFORMATION
  Report Type: Report from Study
  Country: US (occurrence: US)
  Receive Date: 20250917
  Receipt Date: 20250917
  Transmission Date: 20251020
  Serious: Yes (Other)
  Sender: ABBVIE
  Company Number: US-ABBVIE-6378457

PATIENT
  Age: 60 Year
  Sex: Female

DRUGS (2)
  1. SKYRIZI [Suspect]
     Active Substance: RISANKIZUMAB-RZAA
     Indication: Crohn^s disease
     Route: 058
     Dates: start: 20250513
  2. METHOTREXATE [Concomitant]
     Active Substance: METHOTREXATE
     Indication: Product used for unknown indication

REACTIONS (7)
  - Deafness unilateral [Unknown]
  - Visual impairment [Recovering/Resolving]
  - Sinusitis [Recovering/Resolving]
  - Fatigue [Unknown]
  - Vertigo [Unknown]
  - Brain fog [Unknown]
  - Ear inflammation [Unknown]

NARRATIVE: CASE EVENT DATE: 20250101
